FAERS Safety Report 4316886-5 (Version None)
Quarter: 2004Q1

REPORT INFORMATION
  Report Type: 
  Country: None (occurrence: None)
  Receive Date: 20040312
  Receipt Date: 20040312
  Transmission Date: 20041129
  Serious: Yes (Other)
  Sender: FDA-Public Use
  Company Number: None

PATIENT
  Age: 71 Year
  Sex: Female

DRUGS (6)
  1. DURAGESIC [Suspect]
     Dates: start: 20040108
  2. DURAGESIC [Suspect]
     Dates: start: 20040123
  3. ARICEPT [Suspect]
     Dosage: 1 TAB DAILY
  4. SECTRAL [Concomitant]
  5. ZYRTEC [Concomitant]
  6. ASPIRIN [Concomitant]

REACTIONS (7)
  - DIZZINESS [None]
  - DRUG INTERACTION [None]
  - NAUSEA [None]
  - RETCHING [None]
  - SKIN DISCOLOURATION [None]
  - SOMNOLENCE [None]
  - VOMITING [None]
